FAERS Safety Report 17425393 (Version 5)
Quarter: 2020Q2

REPORT INFORMATION
  Report Type: Report from Study
  Country: US (occurrence: US)
  Receive Date: 20200217
  Receipt Date: 20200525
  Transmission Date: 20200713
  Serious: Yes (Hospitalization, Other)
  Sender: FDA-Public Use
  Company Number: US-ROCHE-2543553

PATIENT
  Age: 72 Year
  Sex: Female
  Weight: 61.29 kg

DRUGS (5)
  1. BEVACIZUMAB. [Concomitant]
     Active Substance: BEVACIZUMAB
     Route: 042
     Dates: start: 20191028, end: 20200128
  2. ATEZOLIZUMAB. [Suspect]
     Active Substance: ATEZOLIZUMAB
     Indication: RENAL CELL CARCINOMA
     Dosage: MOST RECENT DOSE PRIOR TO RIGHT LOWER EXTREMITY PAIN: 28/JAN/2020?MOST RECENT DOSE PRIOR TO CHEST PA
     Route: 041
     Dates: start: 20191028
  3. LOVENOX [Concomitant]
     Active Substance: ENOXAPARIN SODIUM
  4. ENTINOSTAT [Suspect]
     Active Substance: ENTINOSTAT
     Indication: RENAL CELL CARCINOMA
     Dosage: MOST RECENT DOSE PRIOR TO RIGHT LOWER EXTREMITY PAIN: 28/JAN/2020?MOST RECENT DOSE PRIOR TO CHEST PA
     Route: 048
     Dates: start: 20191028, end: 20200128
  5. BEVACIZUMAB. [Suspect]
     Active Substance: BEVACIZUMAB
     Indication: RENAL CELL CARCINOMA
     Dosage: MOST RECENT DOSE PRIOR TO RIGHT LOWER EXTREMITY PAIN: 28/JAN/2020?MOST RECENT DOSE PRIOR TO CHEST PA
     Route: 042
     Dates: start: 20191028

REACTIONS (3)
  - Pain in extremity [Recovered/Resolved]
  - Dysplastic naevus [Unknown]
  - Chest pain [Recovered/Resolved]

NARRATIVE: CASE EVENT DATE: 20191122
